FAERS Safety Report 9500311 (Version 1)
Quarter: 2013Q1

REPORT INFORMATION
  Report Type: Spontaneous
  Country: US (occurrence: None)
  Receive Date: 20130107
  Receipt Date: 20130107
  Transmission Date: 20140127
  Serious: No
  Sender: FDA-Public Use
  Company Number: PHHY2012US098279

PATIENT
  Age: 42 Year
  Sex: 0
  Weight: 106.1 kg

DRUGS (1)
  1. GILENYA (FINGOLIMOD) CAPSULE, 0.5MG [Suspect]
     Indication: MULTIPLE SCLEROSIS
     Route: 048
     Dates: start: 20110615

REACTIONS (6)
  - Aspartate aminotransferase increased [None]
  - White blood cell count decreased [None]
  - Hepatic enzyme increased [None]
  - CD4/CD8 ratio decreased [None]
  - Alanine aminotransferase increased [None]
  - Inappropriate schedule of drug administration [None]
